FAERS Safety Report 19599904 (Version 1)
Quarter: 2021Q3

REPORT INFORMATION
  Report Type: Spontaneous
  Country: FR (occurrence: FR)
  Receive Date: 20210722
  Receipt Date: 20210722
  Transmission Date: 20211014
  Serious: Yes (Hospitalization)
  Sender: FDA-Public Use
  Company Number: FR-PFIZER INC-2021867006

PATIENT
  Age: 42 Year
  Sex: Female

DRUGS (1)
  1. TRINORDIOL [Suspect]
     Active Substance: ETHINYL ESTRADIOL\LEVONORGESTREL
     Dosage: 1 DF
     Route: 048

REACTIONS (1)
  - Cerebral venous thrombosis [Recovered/Resolved]

NARRATIVE: CASE EVENT DATE: 20210601
